FAERS Safety Report 8763294 (Version 1)
Quarter: 2012Q4

REPORT INFORMATION
  Report Type: 
  Country: US (occurrence: US)
  Receive Date: 20120831
  Receipt Date: 20120831
  Transmission Date: 20130627
  Serious: Yes (Other)
  Sender: FDA-Public Use
  Company Number: US-ENDO PHARMACEUTICALS INC.-LACT20120004

PATIENT
  Age: 49 Year
  Sex: Female

DRUGS (1)
  1. LACTULOSE [Suspect]
     Indication: CONSTIPATION
     Route: 048
     Dates: start: 20120712, end: 20120816

REACTIONS (3)
  - Hepatic encephalopathy [Recovering/Resolving]
  - Depressed level of consciousness [Recovering/Resolving]
  - Drug ineffective [Recovering/Resolving]
